FAERS Safety Report 4860491-9 (Version None)
Quarter: 2005Q4

REPORT INFORMATION
  Report Type: 
  Country: None (occurrence: None)
  Receive Date: 20051219
  Receipt Date: 20051209
  Transmission Date: 20060501
  Serious: Yes (Other)
  Sender: FDA-Public Use
  Company Number: DE-AMGEN-UK160976

PATIENT
  Age: 32 Year
  Sex: Female

DRUGS (1)
  1. KEPIVANCE [Suspect]
     Indication: DRUG USE FOR UNKNOWN INDICATION
     Route: 065

REACTIONS (7)
  - BLOOD LACTATE DEHYDROGENASE INCREASED [None]
  - DIALYSIS [None]
  - DYSGEUSIA [None]
  - PLATELET DISORDER [None]
  - RENAL FAILURE [None]
  - SWOLLEN TONGUE [None]
  - THROMBOTIC MICROANGIOPATHY [None]
